FAERS Safety Report 9171398 (Version 8)
Quarter: 2014Q2

REPORT INFORMATION
  Report Type: Report from Study
  Country: FR (occurrence: FR)
  Receive Date: 20130319
  Receipt Date: 20140425
  Transmission Date: 20141212
  Serious: Yes (Hospitalization, Other)
  Sender: FDA-Public Use
  Company Number: FR-ROCHE-1200872

PATIENT
  Age: 73 Year
  Sex: Female
  Weight: 58 kg

DRUGS (13)
  1. BLINDED PERTUZUMAB [Suspect]
     Indication: BREAST CANCER
     Dosage: DATE OF LAST DOSE PRIOR TO SAE 13/FEB/2013. LOADING DOSE
     Route: 042
     Dates: start: 20130213
  2. BLINDED PERTUZUMAB [Suspect]
     Dosage: MAINTAINANCE DOSE APPROXIMATELY 3 WEEKS LATER
     Route: 042
  3. TRASTUZUMAB [Suspect]
     Indication: BREAST CANCER
     Dosage: LOADING DOSE
     Route: 042
  4. TRASTUZUMAB [Suspect]
     Dosage: MAINTAINANCE DOSE APPROXIMATELY 3 WEEKS LATER
     Route: 042
  5. DOCETAXEL [Suspect]
     Indication: BREAST CANCER
     Route: 065
  6. CARBOPLATIN [Suspect]
     Indication: BREAST CANCER
     Route: 065
  7. VALDOXAN [Concomitant]
     Route: 065
     Dates: start: 2009
  8. SEROPRAM (FRANCE) [Concomitant]
     Route: 065
     Dates: start: 2003
  9. STAGID [Concomitant]
     Route: 065
     Dates: start: 1992
  10. LEVOTHYROX [Concomitant]
     Route: 065
     Dates: start: 1978
  11. OMACOR [Concomitant]
     Route: 065
     Dates: start: 2012
  12. TOCO [Concomitant]
     Route: 065
     Dates: start: 2012
  13. METEOSPASMYL [Concomitant]
     Route: 065
     Dates: start: 2003

REACTIONS (2)
  - Gastrointestinal pain [Recovered/Resolved]
  - Febrile neutropenia [Recovered/Resolved]
